FAERS Safety Report 4745794-0 (Version None)
Quarter: 2005Q3

REPORT INFORMATION
  Report Type: 
  Country: None (occurrence: None)
  Receive Date: 20050815
  Receipt Date: 20050815
  Transmission Date: 20060218
  Serious: No
  Sender: FDA-Public Use
  Company Number: None

PATIENT
  Sex: Male
  Weight: 64.8644 kg

DRUGS (2)
  1. CISPLATIN [Suspect]
     Dosage: 100MG   ONCE  INTRAVENOU
     Route: 042
     Dates: start: 20050719, end: 20050719
  2. HEPARIN LOCK-FLUSH [Suspect]
     Dates: start: 20050719, end: 20050719

REACTIONS (2)
  - PLATELET COUNT DECREASED [None]
  - POST PROCEDURAL COMPLICATION [None]
